FAERS Safety Report 5120760-4 (Version None)
Quarter: 2006Q4

REPORT INFORMATION
  Report Type: 
  Country: None (occurrence: None)
  Receive Date: 20061003
  Receipt Date: 20061003
  Transmission Date: 20070319
  Serious: Yes (Other)
  Sender: FDA-Public Use
  Company Number: None

PATIENT
  Age: 18 Year
  Sex: Female
  Weight: 42.9 kg

DRUGS (2)
  1. VFEND [Suspect]
     Indication: BRONCHOPULMONARY ASPERGILLOSIS ALLERGIC
     Dosage: 200 MG PO Q 12 HR
     Route: 048
     Dates: start: 20060914, end: 20060918
  2. VFEND [Suspect]
     Indication: BRONCHOPULMONARY ASPERGILLOSIS ALLERGIC
     Dosage: 250 MG Q 12 HRS X 2 IV
     Route: 042
     Dates: start: 20060913, end: 20060914

REACTIONS (1)
  - VISUAL DISTURBANCE [None]
